FAERS Safety Report 6611612-9 (Version None)
Quarter: 2010Q1

REPORT INFORMATION
  Report Type: 
  Country: None (occurrence: None)
  Receive Date: 20100218
  Receipt Date: 20091215
  Transmission Date: 20100710
  Serious: Yes (Other)
  Sender: FDA-Public Use
  Company Number: 2009310905

PATIENT
  Age: 44 Year
  Sex: Male
  Weight: 95.3 kg

DRUGS (1)
  1. DAYPRO [Suspect]
     Indication: HEADACHE
     Dates: start: 19981218, end: 19981223

REACTIONS (1)
  - MYOCARDIAL INFARCTION [None]
